FAERS Safety Report 4918484-9 (Version None)
Quarter: 2006Q1

REPORT INFORMATION
  Report Type: 
  Country: None (occurrence: None)
  Receive Date: 20060217
  Receipt Date: 20060217
  Transmission Date: 20060701
  Serious: Yes (Death)
  Sender: FDA-Public Use
  Company Number: None

PATIENT
  Sex: Male
  Weight: 87.7 kg

DRUGS (1)
  1. TEMOZOLOMIDE [Suspect]
     Dosage: 1900 MG

REACTIONS (3)
  - ABNORMAL BEHAVIOUR [None]
  - ASTHENIA [None]
  - FALL [None]
